FAERS Safety Report 9602741 (Version 1)
Quarter: 2013Q4

REPORT INFORMATION
  Report Type: Spontaneous
  Country: US (occurrence: US)
  Receive Date: 20131007
  Receipt Date: 20131007
  Transmission Date: 20140711
  Serious: Yes (Hospitalization, Other)
  Sender: FDA-Public Use
  Company Number: US-PFIZER INC-2013282942

PATIENT
  Sex: Male

DRUGS (6)
  1. NEURONTIN [Suspect]
     Indication: MUSCLE SPASMS
     Dosage: 800 MG, 4X/DAY
     Route: 048
     Dates: start: 200109
  2. NEURONTIN [Suspect]
     Indication: PAIN IN EXTREMITY
  3. NEURONTIN [Suspect]
     Indication: MUSCLE SPASMS
     Dosage: 400 MG(BY TAKING ONE CAPSULE OF 300MG AND OTHER CAPSULE OF 100MG), 4X/DAY
     Route: 048
     Dates: start: 200109
  4. NEURONTIN [Suspect]
     Indication: PAIN IN EXTREMITY
  5. BACLOFEN [Concomitant]
     Dosage: UNK
  6. ZANAFLEX [Concomitant]
     Dosage: UNK

REACTIONS (3)
  - Off label use [Unknown]
  - Kidney infection [Unknown]
  - Wrong technique in drug usage process [Unknown]
